FAERS Safety Report 17650143 (Version 2)
Quarter: 2020Q2

REPORT INFORMATION
  Report Type: Report from Study
  Country: GB (occurrence: GB)
  Receive Date: 20200409
  Receipt Date: 20200602
  Transmission Date: 20200713
  Serious: Yes (Other)
  Sender: FDA-Public Use
  Company Number: GB-JNJFOC-20200141907

PATIENT
  Age: 33 Year
  Sex: Male

DRUGS (2)
  1. STELARA [Suspect]
     Active Substance: USTEKINUMAB
  2. STELARA [Suspect]
     Active Substance: USTEKINUMAB
     Indication: PSORIASIS
     Route: 058
     Dates: start: 20180809

REACTIONS (5)
  - Inappropriate schedule of product administration [Unknown]
  - Psoriasis [Unknown]
  - Lower respiratory tract infection [Unknown]
  - Influenza [Unknown]
  - Self-medication [Unknown]

NARRATIVE: CASE EVENT DATE: 20191023
